FAERS Safety Report 14846050 (Version 3)
Quarter: 2018Q3

REPORT INFORMATION
  Report Type: Spontaneous
  Country: US (occurrence: US)
  Receive Date: 20180504
  Receipt Date: 20180821
  Transmission Date: 20181010
  Serious: Yes (Other)
  Sender: FDA-Public Use
  Company Number: US-CIPLA (EU) LIMITED-2018US17124

PATIENT

DRUGS (3)
  1. MECLIZINE [Suspect]
     Active Substance: MECLIZINE HYDROCHLORIDE
     Indication: PRODUCT USED FOR UNKNOWN INDICATION
     Dosage: UNK
     Route: 065
  2. BUPROPION. [Suspect]
     Active Substance: BUPROPION
     Indication: PRODUCT USED FOR UNKNOWN INDICATION
     Dosage: UNK
     Route: 065
  3. FLUOXETINE [Suspect]
     Active Substance: FLUOXETINE HYDROCHLORIDE
     Indication: PRODUCT USED FOR UNKNOWN INDICATION
     Dosage: UNK
     Route: 065

REACTIONS (15)
  - Coma [Unknown]
  - Metabolic acidosis [Unknown]
  - Agitation [Unknown]
  - Toxicity to various agents [Unknown]
  - Hyperreflexia [Unknown]
  - Tremor [Unknown]
  - Bradycardia [Unknown]
  - Rhabdomyolysis [Unknown]
  - Pneumonia aspiration [Unknown]
  - Depressed level of consciousness [Unknown]
  - Seizure [Unknown]
  - Bradypnoea [Unknown]
  - Arrhythmia [Unknown]
  - Hypotension [Unknown]
  - Tachycardia [Unknown]
